FAERS Safety Report 6465207-0 (Version None)
Quarter: 2009Q4

REPORT INFORMATION
  Report Type: 
  Country: None (occurrence: None)
  Receive Date: 20091201
  Receipt Date: 20091127
  Transmission Date: 20100525
  Serious: Yes (Life-Threatening, Other)
  Sender: FDA-Public Use
  Company Number: PHHY2009HR52282

PATIENT
  Sex: Female

DRUGS (4)
  1. LEPONEX [Suspect]
     Indication: ACUTE PSYCHOSIS
     Dosage: UNK
     Route: 048
     Dates: start: 20090908
  2. LEPONEX [Suspect]
     Dosage: 100 MG / DAY
     Route: 048
     Dates: start: 20090922
  3. LEPONEX [Suspect]
     Dosage: UNK
     Route: 048
     Dates: end: 20091006
  4. NORMABEL (DIAZEPAM) [Concomitant]
     Indication: ACUTE PSYCHOSIS
     Dosage: 1 DF, QD
     Route: 048
     Dates: start: 20070724

REACTIONS (15)
  - ASTHENIA [None]
  - CHILLS [None]
  - DYSARTHRIA [None]
  - DYSPHAGIA [None]
  - DYSTONIA [None]
  - EXTRAPYRAMIDAL DISORDER [None]
  - FATIGUE [None]
  - HALLUCINATION [None]
  - HYPERHIDROSIS [None]
  - MALAISE [None]
  - PARKINSONISM [None]
  - SALIVARY HYPERSECRETION [None]
  - SLUGGISHNESS [None]
  - SUICIDAL IDEATION [None]
  - TREMOR [None]
